FAERS Safety Report 5719346-X (Version None)
Quarter: 2008Q2

REPORT INFORMATION
  Report Type: 
  Country: None (occurrence: None)
  Receive Date: 20080428
  Receipt Date: 20080422
  Transmission Date: 20081010
  Serious: Yes (Other)
  Sender: FDA-Public Use
  Company Number: DE-WYE-G01440008

PATIENT
  Sex: Male
  Weight: 72 kg

DRUGS (6)
  1. TYGACIL [Suspect]
     Indication: DIABETIC FOOT INFECTION
     Route: 042
     Dates: start: 20080310, end: 20080310
  2. TYGACIL [Suspect]
     Route: 042
     Dates: start: 20080311, end: 20080313
  3. GLUCOCORTICOIDS [Concomitant]
     Indication: DERMATITIS ALLERGIC
     Dosage: UNKNOWN
     Route: 061
  4. LASIX [Concomitant]
     Indication: HYPERTENSION
     Route: 048
  5. PLAVIX [Concomitant]
     Indication: PERIPHERAL ARTERIAL OCCLUSIVE DISEASE
     Route: 048
  6. ACETYLSALICYLIC ACID SRT [Concomitant]
     Indication: PERIPHERAL ARTERIAL OCCLUSIVE DISEASE
     Route: 048

REACTIONS (4)
  - CONDITION AGGRAVATED [None]
  - DERMATITIS ALLERGIC [None]
  - DYSPNOEA [None]
  - GENERAL PHYSICAL HEALTH DETERIORATION [None]
